FAERS Safety Report 4439123-X (Version None)
Quarter: 2004Q3

REPORT INFORMATION
  Report Type: 
  Country: None (occurrence: None)
  Receive Date: 20040831
  Receipt Date: 20040810
  Transmission Date: 20050211
  Serious: Yes (Hospitalization)
  Sender: FDA-Public Use
  Company Number: F01200402414

PATIENT
  Age: 62 Year
  Sex: Female

DRUGS (3)
  1. (OXALIPLATIN) - SOLUTION - 100 MG/M2 [Suspect]
     Indication: NUCLEAR MAGNETIC RESONANCE IMAGING
     Dosage: 100 MG/M2 Q3W, INTRAVENOUS NOS
     Route: 042
     Dates: start: 20040719, end: 20040719
  2. (OXALIPLATIN) - SOLUTION - 100 MG/M2 [Suspect]
     Indication: RECTAL CANCER
     Dosage: 100 MG/M2 Q3W, INTRAVENOUS NOS
     Route: 042
     Dates: start: 20040719, end: 20040719
  3. (CAPECITABINE) - TABLET - 825 MG/M2 [Suspect]
     Dosage: 825 MG/M2 TWICE DAILY FROM DAY 1 TO DAY 15, Q3W
     Route: 048
     Dates: start: 20040719, end: 20040801

REACTIONS (6)
  - ANOREXIA [None]
  - BLOOD CREATINE INCREASED [None]
  - GENERAL PHYSICAL HEALTH DETERIORATION [None]
  - HYPERGLYCAEMIA [None]
  - HYPOKALAEMIA [None]
  - HYPONATRAEMIA [None]
